FAERS Safety Report 10025931 (Version 4)
Quarter: 2014Q2

REPORT INFORMATION
  Report Type: Report from Study
  Country: US (occurrence: US)
  Receive Date: 20140320
  Receipt Date: 20140414
  Transmission Date: 20141212
  Serious: Yes (Other)
  Sender: FDA-Public Use
  Company Number: US-JNJFOC-20140308295

PATIENT
  Sex: Female
  Weight: 59.88 kg

DRUGS (10)
  1. REMICADE [Suspect]
     Indication: RHEUMATOID ARTHRITIS
     Route: 042
     Dates: start: 20140225
  2. REMICADE [Suspect]
     Indication: RHEUMATOID ARTHRITIS
     Route: 042
     Dates: start: 2007
  3. VITAMIN D3 [Concomitant]
     Indication: BONE DISORDER
     Dosage: 3500 AU
     Route: 048
     Dates: start: 201402
  4. BENAZEPRIL [Concomitant]
     Indication: HYPERTENSION
     Route: 048
  5. RECLAST [Concomitant]
     Indication: BONE DISORDER
     Route: 065
     Dates: start: 20140206
  6. CALCIUM [Concomitant]
     Indication: BONE DISORDER
     Dosage: HALF TABLE SPOON
     Route: 048
     Dates: start: 201402
  7. MAGNESIUM [Concomitant]
     Indication: BONE DISORDER
     Dosage: HALF TABLE SPOON
     Route: 048
     Dates: start: 201402
  8. ATORVASTATIN [Concomitant]
     Indication: BLOOD CHOLESTEROL
     Route: 048
  9. AMLODIPINE [Concomitant]
     Indication: BLOOD PRESSURE
     Route: 048
  10. METOPROLOL [Concomitant]
     Indication: HEART RATE IRREGULAR
     Route: 048

REACTIONS (4)
  - Thyroid disorder [Not Recovered/Not Resolved]
  - Abasia [Not Recovered/Not Resolved]
  - Nodule [Not Recovered/Not Resolved]
  - Drug ineffective [Not Recovered/Not Resolved]
